FAERS Safety Report 9175801 (Version 5)
Quarter: 2014Q1

REPORT INFORMATION
  Report Type: Spontaneous
  Country: FR (occurrence: FR)
  Receive Date: 20130320
  Receipt Date: 20140328
  Transmission Date: 20141002
  Serious: Yes (Hospitalization)
  Sender: FDA-Public Use
  Company Number: FR-VERTEX PHARMACEUTICALS INC.-2013-003834

PATIENT
  Age: 46 Year
  Sex: Male
  Weight: 70 kg

DRUGS (8)
  1. INCIVO [Suspect]
     Indication: HEPATITIS C
     Dosage: 1125 MG, BID
     Route: 065
     Dates: start: 20130107, end: 20130226
  2. PEGINTERFERON ALFA-2A [Suspect]
     Indication: HEPATITIS C
     Dosage: 180 ?G, QW
     Route: 058
     Dates: start: 20130107, end: 20130217
  3. PEGINTERFERON ALFA-2A [Suspect]
     Dosage: 180 ?G, QW
     Route: 058
     Dates: start: 20130219, end: 20130225
  4. RIBAVIRIN [Suspect]
     Indication: HEPATITIS C
     Dosage: 300 MG, BID
     Route: 048
     Dates: start: 20130219, end: 20130226
  5. RIBAVIRIN [Suspect]
     Dosage: 300 MG, BID
     Route: 048
     Dates: start: 20130107, end: 20130217
  6. BACLOFEN [Concomitant]
     Indication: ALCOHOLISM
     Dosage: 10 MG, UNK
     Route: 048
     Dates: start: 2012
  7. SUBUTEX [Concomitant]
     Dosage: 1 MG, BID
     Route: 048
     Dates: start: 201204
  8. VALIUM [Concomitant]
     Indication: AGGRESSION
     Dosage: 10 MG, UNK
     Route: 048
     Dates: start: 20130227

REACTIONS (4)
  - Hepatic cirrhosis [Recovered/Resolved]
  - Alcoholism [Not Recovered/Not Resolved]
  - Oesophageal candidiasis [Unknown]
  - Oral candidiasis [Unknown]
